FAERS Safety Report 8507876-7 (Version None)
Quarter: 2012Q3

REPORT INFORMATION
  Report Type: 
  Country: None (occurrence: None)
  Receive Date: 20120709
  Receipt Date: 20120709
  Transmission Date: 20120928
  Serious: Yes (Hospitalization)
  Sender: FDA-Public Use
  Company Number: None

PATIENT

DRUGS (2)
  1. VICODIN [Suspect]
  2. BACLOFEN [Suspect]

REACTIONS (3)
  - MEDICATION ERROR [None]
  - DEPRESSED LEVEL OF CONSCIOUSNESS [None]
  - ASTHENIA [None]
